FAERS Safety Report 7365864-0 (Version None)
Quarter: 2011Q1

REPORT INFORMATION
  Report Type: 
  Country: None (occurrence: None)
  Receive Date: 20110322
  Receipt Date: 20110309
  Transmission Date: 20110831
  Serious: Yes (Other)
  Sender: FDA-Public Use
  Company Number: JP-ALLERGAN-1103703US

PATIENT
  Age: 74 Year
  Sex: Male

DRUGS (1)
  1. BOTOX [Suspect]
     Indication: PARALYSIS
     Dosage: UNK
     Route: 030

REACTIONS (1)
  - VIITH NERVE PARALYSIS [None]
